FAERS Safety Report 21582158 (Version 1)
Quarter: 2022Q4

REPORT INFORMATION
  Report Type: Spontaneous
  Country: US (occurrence: None)
  Receive Date: 20221108
  Receipt Date: 20221108
  Transmission Date: 20230112
  Serious: Yes (Hospitalization)
  Sender: FDA-Public Use
  Company Number: None

PATIENT

DRUGS (2)
  1. MINOXIDIL [Suspect]
     Active Substance: MINOXIDIL
     Route: 048
  2. DIETARY SUPPLEMENT [Suspect]
     Active Substance: DIETARY SUPPLEMENT

REACTIONS (11)
  - Product name confusion [None]
  - Nausea [None]
  - Vomiting [None]
  - Tachycardia [None]
  - Troponin increased [None]
  - Hypotension [None]
  - Electrocardiogram T wave inversion [None]
  - Product preparation error [None]
  - Product dispensing error [None]
  - Wrong product administered [None]
  - Diarrhoea [None]
